FAERS Safety Report 8923104 (Version 1)
Quarter: 2012Q4

REPORT INFORMATION
  Report Type: 
  Country: US (occurrence: US)
  Receive Date: 20121124
  Receipt Date: 20121124
  Transmission Date: 20130627
  Serious: Yes (Other)
  Sender: FDA-Public Use
  Company Number: PHEH2012US022929

PATIENT
  Sex: Female

DRUGS (7)
  1. RECLAST [Suspect]
     Indication: OSTEOPOROSIS
     Dosage: UNK
     Route: 042
  2. RECLAST [Suspect]
     Dosage: UNK
     Route: 042
  3. RECLAST [Suspect]
     Dosage: UNK
     Route: 042
     Dates: start: 201211
  4. VITAMIN B [Concomitant]
  5. CALCIUM [Concomitant]
  6. METOPROLOL TARTRATE [Concomitant]
  7. RYTHMOL [Concomitant]

REACTIONS (7)
  - Pelvic fracture [Unknown]
  - Fall [Unknown]
  - Atrial fibrillation [Unknown]
  - Flatulence [Unknown]
  - Frequent bowel movements [Unknown]
  - Pollakiuria [Unknown]
  - Chills [Unknown]
